FAERS Safety Report 6455869-6 (Version None)
Quarter: 2009Q4

REPORT INFORMATION
  Report Type: 
  Country: None (occurrence: None)
  Receive Date: 20091125
  Receipt Date: 20091117
  Transmission Date: 20100525
  Serious: Yes (Other)
  Sender: FDA-Public Use
  Company Number: JP-PFIZER INC-2009300492

PATIENT
  Age: 75 Year
  Sex: Female

DRUGS (5)
  1. ZITHROMAC SR [Suspect]
     Indication: PHARYNGITIS
     Dosage: 2 G, 1X/DAY
     Route: 048
     Dates: start: 20091116, end: 20091116
  2. HUSCODE [Suspect]
     Indication: PHARYNGITIS
     Route: 048
     Dates: start: 20091116, end: 20091117
  3. CHLORPHENIRAMINE MALEATE [Suspect]
     Indication: PHARYNGITIS
     Route: 048
     Dates: start: 20091116, end: 20091117
  4. MICARDIS [Concomitant]
     Indication: HYPERTENSION
     Dosage: UNK
     Route: 048
     Dates: start: 20081001
  5. BEZATOL - SLOW RELEASE [Concomitant]
     Indication: HYPERTENSION
     Dosage: UNK
     Route: 048
     Dates: start: 20081001

REACTIONS (1)
  - LOSS OF CONSCIOUSNESS [None]
